FAERS Safety Report 19695272 (Version 1)
Quarter: 2021Q3

REPORT INFORMATION
  Report Type: Spontaneous
  Country: BR (occurrence: BR)
  Receive Date: 20210813
  Receipt Date: 20210813
  Transmission Date: 20211014
  Serious: Yes (Hospitalization)
  Sender: FDA-Public Use
  Company Number: BR-STRIDES ARCOLAB LIMITED-2021SP026245

PATIENT
  Age: 6 Year
  Sex: Male

DRUGS (33)
  1. AZATHIOPRINE. [Suspect]
     Active Substance: AZATHIOPRINE
     Indication: ACUTE DISSEMINATED ENCEPHALOMYELITIS
  2. CARBAMAZEPINE. [Suspect]
     Active Substance: CARBAMAZEPINE
     Indication: PARTIAL SEIZURES
     Dosage: 30 MILLIGRAM/KILOGRAM PER DAY
     Route: 065
  3. ACYCLOVIR [ACICLOVIR] [Concomitant]
     Active Substance: ACYCLOVIR
     Indication: ACUTE DISSEMINATED ENCEPHALOMYELITIS
  4. COTRIMOXAZOLE [Concomitant]
     Active Substance: SULFAMETHOXAZOLE\TRIMETHOPRIM
     Indication: INTERSTITIAL LUNG DISEASE
     Dosage: UNK, 12 DAY COURSE
     Route: 065
  5. PREDNISOLONE. [Suspect]
     Active Substance: PREDNISOLONE
     Indication: PARVOVIRUS B19 INFECTION
  6. ACYCLOVIR [ACICLOVIR] [Concomitant]
     Active Substance: ACYCLOVIR
     Indication: PARVOVIRUS B19 INFECTION
     Dosage: 30 MILLIGRAM/KILOGRAM PER DAY
     Route: 065
  7. METHYLPREDNISOLONE. [Concomitant]
     Active Substance: METHYLPREDNISOLONE
     Indication: ENCEPHALITIS
  8. VALPROIC ACID. [Concomitant]
     Active Substance: VALPROIC ACID
     Indication: PARTIAL SEIZURES
     Dosage: UNK
     Route: 065
  9. PHENOBARBITAL. [Concomitant]
     Active Substance: PHENOBARBITAL
     Indication: PARTIAL SEIZURES
     Dosage: 10 MILLIGRAM/KILOGRAM PER DAY
     Route: 065
  10. TOPIRAMATE. [Concomitant]
     Active Substance: TOPIRAMATE
     Indication: PARTIAL SEIZURES
     Dosage: 15 MILLIGRAM/KILOGRAM PER DAY
     Route: 065
  11. ACYCLOVIR [ACICLOVIR] [Concomitant]
     Active Substance: ACYCLOVIR
     Indication: ENCEPHALITIS
  12. MEROPENEM. [Concomitant]
     Active Substance: MEROPENEM
     Indication: INTERSTITIAL LUNG DISEASE
     Dosage: UNK, 12 DAY COURSE
     Route: 065
  13. PREDNISOLONE. [Suspect]
     Active Substance: PREDNISOLONE
     Indication: ACUTE DISSEMINATED ENCEPHALOMYELITIS
  14. AZATHIOPRINE. [Suspect]
     Active Substance: AZATHIOPRINE
     Indication: ENCEPHALITIS
  15. CYCLOPHOSPHAMIDE. [Concomitant]
     Active Substance: CYCLOPHOSPHAMIDE
     Indication: IMMUNOSUPPRESSANT DRUG THERAPY
     Dosage: UNK
     Route: 065
  16. CYCLOSPORINE. [Suspect]
     Active Substance: CYCLOSPORINE
     Indication: PARVOVIRUS B19 INFECTION
  17. CYCLOSPORINE. [Suspect]
     Active Substance: CYCLOSPORINE
     Indication: ENCEPHALITIS
  18. CYCLOSPORINE. [Suspect]
     Active Substance: CYCLOSPORINE
     Indication: ACUTE DISSEMINATED ENCEPHALOMYELITIS
  19. PHENYTOIN. [Concomitant]
     Active Substance: PHENYTOIN
     Indication: PARTIAL SEIZURES
     Dosage: 15 MILLIGRAM/KILOGRAM PER DAY
     Route: 065
  20. METHYLPREDNISOLONE. [Concomitant]
     Active Substance: METHYLPREDNISOLONE
     Indication: PARVOVIRUS B19 INFECTION
     Dosage: 30 MILLIGRAM/KILOGRAM PER DAY
     Route: 065
  21. METHYLPREDNISOLONE. [Concomitant]
     Active Substance: METHYLPREDNISOLONE
     Indication: ACUTE DISSEMINATED ENCEPHALOMYELITIS
  22. PIPERACILLIN/TAZOBACTAM [Concomitant]
     Active Substance: PIPERACILLIN SODIUM\TAZOBACTAM SODIUM
     Indication: RESPIRATORY DISTRESS
     Dosage: 0.6 MILLIGRAM/KILOGRAM PER DAY
     Route: 065
  23. MICAFUNGIN. [Concomitant]
     Active Substance: MICAFUNGIN SODIUM
     Indication: INTERSTITIAL LUNG DISEASE
     Dosage: UNK, 12 DAY COURSE
     Route: 065
  24. PREDNISOLONE. [Suspect]
     Active Substance: PREDNISOLONE
     Indication: PARTIAL SEIZURES
     Dosage: 2 MILLIGRAM/KILOGRAM PER DAY
     Route: 065
  25. ENALAPRIL [Concomitant]
     Active Substance: ENALAPRIL
     Indication: HYPERTENSION
     Dosage: 0.6 MILLIGRAM/KILOGRAM PER DAY
     Route: 065
  26. PREDNISOLONE. [Suspect]
     Active Substance: PREDNISOLONE
     Indication: ENCEPHALITIS
  27. AZATHIOPRINE. [Suspect]
     Active Substance: AZATHIOPRINE
     Indication: PARTIAL SEIZURES
     Dosage: 1.7 MILLIGRAM/KILOGRAM PER DAY
     Route: 065
  28. VANCOMYCIN [Suspect]
     Active Substance: VANCOMYCIN
     Indication: INTERSTITIAL LUNG DISEASE
     Dosage: UNK, 12 DAY COURSE
     Route: 065
  29. CYCLOSPORINE. [Suspect]
     Active Substance: CYCLOSPORINE
     Indication: PARTIAL SEIZURES
     Dosage: 4 MILLIGRAM/KILOGRAM PER DAY
     Route: 065
  30. MIDAZOLAM. [Concomitant]
     Active Substance: MIDAZOLAM
     Dosage: 2 MICROGRAM/KILOGRAM/MIN
     Route: 065
  31. AMLODIPINE [Concomitant]
     Active Substance: AMLODIPINE BESYLATE
     Indication: HYPERTENSION
     Dosage: 0.6 MILLIGRAM/KILOGRAM PER DAY
     Route: 065
  32. AZATHIOPRINE. [Suspect]
     Active Substance: AZATHIOPRINE
     Indication: PARVOVIRUS B19 INFECTION
     Dosage: UNK, (DAILY) CONTINUED FOER 22 MONTHS
     Route: 065
  33. MIDAZOLAM. [Concomitant]
     Active Substance: MIDAZOLAM
     Indication: PARTIAL SEIZURES
     Dosage: 0.2 MILLIGRAM/KILOGRAM PER DOSE
     Route: 065

REACTIONS (3)
  - Off label use [Unknown]
  - Hypogammaglobulinaemia [Unknown]
  - Drug ineffective [Unknown]
